FAERS Safety Report 22344026 (Version 1)
Quarter: 2023Q2

REPORT INFORMATION
  Report Type: Spontaneous
  Country: US (occurrence: None)
  Receive Date: 20230518
  Receipt Date: 20230518
  Transmission Date: 20230722
  Serious: Yes (Other)
  Sender: FDA-Public Use
  Company Number: None

PATIENT
  Age: 26 Year
  Sex: Male
  Weight: 69.75 kg

DRUGS (5)
  1. LINZESS [Suspect]
     Active Substance: LINACLOTIDE
     Indication: Irritable bowel syndrome
     Dosage: OTHER STRENGTH : MCG;?OTHER QUANTITY : 1 CAPSULE(S);?
     Route: 048
     Dates: start: 20230518, end: 20230518
  2. Pantoprazole SOD DR (40mg) [Concomitant]
  3. Dicyclomine (10mg) [Concomitant]
  4. amphetamine sulfate (10mg) [Concomitant]
  5. VITAMIN D [Concomitant]
     Active Substance: VITAMIN D NOS

REACTIONS (3)
  - Testicular pain [None]
  - Diarrhoea [None]
  - Abdominal pain [None]

NARRATIVE: CASE EVENT DATE: 20230518
